FAERS Safety Report 20816925 (Version 1)
Quarter: 2022Q2

REPORT INFORMATION
  Report Type: Spontaneous
  Country: US (occurrence: US)
  Receive Date: 20220512
  Receipt Date: 20220512
  Transmission Date: 20220721
  Serious: Yes (Other)
  Sender: FDA-Public Use
  Company Number: US-NEBO-PC008392

PATIENT
  Sex: Female

DRUGS (1)
  1. MONOFERRIC [Suspect]
     Active Substance: FERRIC DERISOMALTOSE
     Indication: Product used for unknown indication
     Route: 042
     Dates: start: 20220503, end: 20220503

REACTIONS (1)
  - Anaphylactoid reaction [Recovered/Resolved]

NARRATIVE: CASE EVENT DATE: 20220503
